FAERS Safety Report 4421729-5 (Version None)
Quarter: 2004Q3

REPORT INFORMATION
  Report Type: 
  Country: None (occurrence: None)
  Receive Date: 20040806
  Receipt Date: 20040716
  Transmission Date: 20050211
  Serious: Yes (Other)
  Sender: FDA-Public Use
  Company Number: USA040772820

PATIENT
  Age: 44 Year
  Sex: Male
  Weight: 84 kg

DRUGS (2)
  1. HUMULIN N [Suspect]
     Indication: DIABETES MELLITUS
     Dosage: 48 U DAY
     Dates: start: 19840101
  2. HUMULIN R [Suspect]
     Indication: DIABETES MELLITUS
     Dosage: 22 U DAY
     Dates: start: 19840101

REACTIONS (6)
  - BLOOD GLUCOSE INCREASED [None]
  - FOOT FRACTURE [None]
  - MALIGNANT MELANOMA [None]
  - NEUROPATHIC ARTHROPATHY [None]
  - NEUROPATHY [None]
  - SENSORY LOSS [None]
